FAERS Safety Report 8438426-1 (Version None)
Quarter: 2012Q2

REPORT INFORMATION
  Report Type: 
  Country: None (occurrence: None)
  Receive Date: 20120614
  Receipt Date: 20120606
  Transmission Date: 20120825
  Serious: Yes (Other)
  Sender: FDA-Public Use
  Company Number: US-RB-041262-12

PATIENT
  Sex: Male
  Weight: 3.8 kg

DRUGS (8)
  1. BUPRENORPHINE HCL [Suspect]
     Dosage: VARIED TAPERED DOSES
     Route: 064
     Dates: start: 20120401, end: 20120510
  2. BUPRENORPHINE HCL [Suspect]
     Dosage: DOSES VARY
     Route: 063
     Dates: start: 20120512
  3. ZOFRAN [Suspect]
     Indication: NAUSEA
     Dosage: UNKNOWN DOSAGE DETAILS
     Route: 064
     Dates: start: 20111001, end: 20120301
  4. ANTIBIOTIC [Suspect]
     Indication: EAR INFECTION
     Dosage: UNKNOWN DOSAGE DETAILS
     Route: 064
     Dates: start: 20110101, end: 20110101
  5. SUBOXONE [Suspect]
     Indication: DRUG DEPENDENCE
     Dosage: VARIOUS TAPERED DOSES
     Route: 064
     Dates: start: 20110919, end: 20111001
  6. VITAMIN AND MINERAL PRENATAL SUPPLEMENT W/ FOLIC ACID CAP [Suspect]
     Indication: PREGNANCY
     Dosage: ONE DAILY
     Route: 064
     Dates: start: 20111001, end: 20120512
  7. BUPRENORPHINE HCL [Suspect]
     Indication: DRUG DEPENDENCE
     Dosage: 8-16 MG DAILY
     Route: 064
     Dates: start: 20111001, end: 20120401
  8. ZOFRAN [Suspect]
     Indication: VOMITING
     Dosage: UNKNOWN DOSAGE DETAILS
     Route: 064
     Dates: start: 20111001, end: 20120301

REACTIONS (6)
  - FOETAL EXPOSURE DURING PREGNANCY [None]
  - DRUG WITHDRAWAL SYNDROME NEONATAL [None]
  - SNEEZING [None]
  - MECONIUM STAIN [None]
  - EXPOSURE DURING BREAST FEEDING [None]
  - PYREXIA [None]
